FAERS Safety Report 22148189 (Version 1)
Quarter: 2023Q1

REPORT INFORMATION
  Report Type: Spontaneous
  Country: US (occurrence: None)
  Receive Date: 20230328
  Receipt Date: 20230328
  Transmission Date: 20230417
  Serious: Yes (Death)
  Sender: FDA-Public Use
  Company Number: None

PATIENT
  Age: 73 Year
  Sex: Female

DRUGS (10)
  1. LOKELMA [Suspect]
     Active Substance: SODIUM ZIRCONIUM CYCLOSILICATE
     Indication: Hyperkalaemia
     Dates: start: 20230130
  2. METOPROLOL ER SUCCINATE 25MG TABS [Concomitant]
  3. AMLODIPINE BESYLATE [Concomitant]
     Active Substance: AMLODIPINE BESYLATE
  4. LISINOPRIL [Concomitant]
     Active Substance: LISINOPRIL
  5. ALBUTEROL HFA INH (200 PUFFS) 6.7GM [Concomitant]
  6. ASPIRIN 81MG EC LOW DOSE TABLETS [Concomitant]
  7. ATORVASTATIN CALCIUM [Concomitant]
     Active Substance: ATORVASTATIN CALCIUM
  8. CALCIUM CITR+D3 250MG-200UNIT TABS [Concomitant]
  9. GABAPENTIN 400MG CAPSULES [Concomitant]
  10. HYDRALAZINE 50MG TABLETS (ORANGE) [Concomitant]

REACTIONS (1)
  - Death [None]

NARRATIVE: CASE EVENT DATE: 20230321
